FAERS Safety Report 23298031 (Version 1)
Quarter: 2023Q4

REPORT INFORMATION
  Report Type: Report from Study
  Country: CA (occurrence: CA)
  Receive Date: 20231214
  Receipt Date: 20231214
  Transmission Date: 20240110
  Serious: Yes (Hospitalization)
  Sender: FDA-Public Use
  Company Number: CA-TAKEDA-2023TUS120245

PATIENT
  Sex: Male

DRUGS (1)
  1. HUMAN IMMUNOGLOBULIN G [Suspect]
     Active Substance: HUMAN IMMUNOGLOBULIN G
     Indication: Primary immunodeficiency syndrome
     Dosage: 2 GRAM, QD
     Route: 050
     Dates: start: 20231026

REACTIONS (4)
  - Injection site scab [Unknown]
  - Injection site erythema [Unknown]
  - Product administered at inappropriate site [Unknown]
  - Product dose omission issue [Unknown]
